FAERS Safety Report 7099519-7 (Version None)
Quarter: 2010Q4

REPORT INFORMATION
  Report Type: 
  Country: None (occurrence: None)
  Receive Date: 20101112
  Receipt Date: 20081104
  Transmission Date: 20110411
  Serious: No
  Sender: FDA-Public Use
  Company Number: US-KINGPHARMUSA00001-K200801269

PATIENT
  Age: 62 Year
  Sex: Female

DRUGS (4)
  1. LEVOXYL [Suspect]
     Indication: HYPOTHYROIDISM
     Dosage: 75 MCG, QD
     Dates: start: 19800101
  2. MULTI-VITAMINS [Concomitant]
     Dosage: UNK
  3. ASPIRIN [Concomitant]
     Dosage: UNK
  4. CALCIUM W/VITAMIN D NOS [Concomitant]
     Dosage: UNK

REACTIONS (1)
  - PRURITUS [None]
